FAERS Safety Report 7733701-8 (Version None)
Quarter: 2011Q3

REPORT INFORMATION
  Report Type: 
  Country: None (occurrence: None)
  Receive Date: 20110902
  Receipt Date: 20110902
  Transmission Date: 20111222
  Serious: Yes (Life-Threatening, Other)
  Sender: FDA-Public Use
  Company Number: None

PATIENT
  Sex: Female
  Weight: 50.8029 kg

DRUGS (2)
  1. LIALDA [Suspect]
     Indication: CROHN'S DISEASE
     Dosage: LIALDA 1.2 GM 3 TABS - ONCE DAILY MOUTH
     Route: 048
     Dates: start: 20091216
  2. LIALDA [Suspect]
     Indication: CROHN'S DISEASE
     Dosage: LIALDA 1.2 GM 3 TABS - ONCE DAILY MOUTH
     Route: 048
     Dates: start: 20091215

REACTIONS (6)
  - MALAISE [None]
  - RENAL DISORDER [None]
  - YELLOW SKIN [None]
  - OCULAR ICTERUS [None]
  - LIVER DISORDER [None]
  - VOMITING [None]
